FAERS Safety Report 13230843 (Version 1)
Quarter: 2017Q1

REPORT INFORMATION
  Report Type: Spontaneous
  Country: US (occurrence: US)
  Receive Date: 20170214
  Receipt Date: 20170214
  Transmission Date: 20170428
  Serious: No
  Sender: FDA-Public Use
  Company Number: US-PFIZER INC-2017065735

PATIENT
  Age: 11 Year
  Sex: Male

DRUGS (2)
  1. GENOTROPIN [Suspect]
     Active Substance: SOMATROPIN
     Indication: GROWTH HORMONE DEFICIENCY
     Dosage: 1.3 MG, DAILY
     Dates: start: 20140829
  2. GENOTROPIN [Suspect]
     Active Substance: SOMATROPIN
     Indication: GROWTH RETARDATION
     Dosage: 1 MG, 1X/DAY (AT BEDTIME)
     Route: 058
     Dates: start: 20141124

REACTIONS (5)
  - Weight increased [Unknown]
  - Headache [Recovering/Resolving]
  - Injection site haemorrhage [Recovering/Resolving]
  - Blood pressure decreased [Unknown]
  - Condition aggravated [Recovering/Resolving]
